FAERS Safety Report 6345984-X (Version None)
Quarter: 2009Q3

REPORT INFORMATION
  Report Type: 
  Country: None (occurrence: None)
  Receive Date: 20090821
  Receipt Date: 20090708
  Transmission Date: 20100115
  Serious: No
  Sender: FDA-Public Use
  Company Number: 8048726

PATIENT
  Age: 23 Year
  Sex: Female
  Weight: 50.8 kg

DRUGS (3)
  1. CIMZIA [Suspect]
     Indication: CROHN'S DISEASE
     Dosage: 400 MG /M SC
     Route: 058
     Dates: start: 20090413
  2. PENTASA [Concomitant]
  3. VITAMIN D [Concomitant]

REACTIONS (3)
  - MICTURITION URGENCY [None]
  - PARAESTHESIA [None]
  - VAGINAL DISCHARGE [None]
